FAERS Safety Report 9140428 (Version 1)
Quarter: 2013Q1

REPORT INFORMATION
  Report Type: Spontaneous
  Country: US (occurrence: US)
  Receive Date: 20130305
  Receipt Date: 20130305
  Transmission Date: 20140127
  Serious: No
  Sender: FDA-Public Use
  Company Number: US-TEVA-389114USA

PATIENT
  Age: 64 Year
  Sex: Female
  Weight: 77.18 kg

DRUGS (2)
  1. QNASL [Suspect]
     Indication: RHINITIS SEASONAL
     Dosage: QD
     Route: 045
     Dates: start: 20130223
  2. QNASL [Suspect]
     Indication: RHINITIS PERENNIAL

REACTIONS (2)
  - Somnolence [Not Recovered/Not Resolved]
  - Fatigue [Not Recovered/Not Resolved]
